FAERS Safety Report 6100847-X (Version None)
Quarter: 2009Q1

REPORT INFORMATION
  Report Type: 
  Country: None (occurrence: None)
  Receive Date: 20090304
  Receipt Date: 20090225
  Transmission Date: 20090719
  Serious: Yes (Other)
  Sender: FDA-Public Use
  Company Number: US-RANBAXY-2009US-22130

PATIENT

DRUGS (2)
  1. ISOTRETINOIN [Suspect]
     Indication: DRUG USE FOR UNKNOWN INDICATION
     Dosage: 40 MG, QD
     Route: 048
     Dates: start: 20081023, end: 20090218
  2. ISOTRETINOIN [Suspect]
     Dosage: 40 MG, BID
     Route: 048

REACTIONS (2)
  - PREGNANCY [None]
  - SINUSITIS [None]
